FAERS Safety Report 5999646-9 (Version None)
Quarter: 2008Q4

REPORT INFORMATION
  Report Type: 
  Country: None (occurrence: None)
  Receive Date: 20081215
  Receipt Date: 20081201
  Transmission Date: 20090506
  Serious: Yes (Other)
  Sender: FDA-Public Use
  Company Number: US-AMGEN-US323218

PATIENT
  Age: 60 Year
  Sex: Female

DRUGS (3)
  1. ENBREL [Suspect]
     Indication: RHEUMATOID ARTHRITIS
     Dosage: UNKNOWN
     Route: 065
     Dates: start: 19990101, end: 20030901
  2. PREDNISONE TAB [Concomitant]
     Dosage: UNKNOWN
     Route: 065
     Dates: start: 19940101
  3. METHOTREXATE [Concomitant]
     Dosage: DOSE AND FREQUENCY NOT PROVIDED
     Route: 065
     Dates: start: 19941101, end: 20010101

REACTIONS (3)
  - HERPES ZOSTER [None]
  - PLEURAL EFFUSION [None]
  - PULMONARY GRANULOMA [None]
